FAERS Safety Report 9799385 (Version 1)
Quarter: 2014Q1

REPORT INFORMATION
  Report Type: Spontaneous
  Country: US (occurrence: None)
  Receive Date: 20140103
  Receipt Date: 20140103
  Transmission Date: 20141002
  Serious: Yes (Death, Hospitalization)
  Sender: FDA-Public Use
  Company Number: None

PATIENT
  Age: 68 Year
  Sex: Male
  Weight: 34.2 kg

DRUGS (2)
  1. OCTREOTIDE PAMOATE LAR [Suspect]
     Indication: PROSTATE CANCER
     Route: 030
     Dates: start: 20131114
  2. PREDNISONE [Suspect]
     Route: 048
     Dates: start: 20131114

REACTIONS (6)
  - Pyrexia [None]
  - Fatigue [None]
  - Diarrhoea [None]
  - Sepsis [None]
  - Neutropenia [None]
  - Thrombosis [None]
